FAERS Safety Report 4450937-2 (Version None)
Quarter: 2004Q3

REPORT INFORMATION
  Report Type: 
  Country: None (occurrence: None)
  Receive Date: 20040916
  Receipt Date: 20030527
  Transmission Date: 20050211
  Serious: Yes (Other)
  Sender: FDA-Public Use
  Company Number: US-BRISTOL-MYERS SQUIBB COMPANY-12286100

PATIENT
  Age: 38 Year
  Sex: Female

DRUGS (2)
  1. STADOL [Suspect]
     Indication: PAIN
     Route: 030
     Dates: start: 19831102, end: 19891213
  2. STADOL [Suspect]
     Route: 045
     Dates: start: 19960101, end: 19970101

REACTIONS (6)
  - ASTHENIA [None]
  - COLD SWEAT [None]
  - DEPENDENCE [None]
  - DYSPNOEA [None]
  - HYPERHIDROSIS [None]
  - PANIC ATTACK [None]
